FAERS Safety Report 13153301 (Version 1)
Quarter: 2017Q1

REPORT INFORMATION
  Report Type: Spontaneous
  Country: US (occurrence: US)
  Receive Date: 20170126
  Receipt Date: 20170126
  Transmission Date: 20170428
  Serious: No
  Sender: FDA-Public Use
  Company Number: US-TORRENT-00001317

PATIENT
  Sex: Female
  Weight: 92 kg

DRUGS (1)
  1. TELMISARTAN AND HYDROCHLOROTHIAZIDE TABLETS (80 MG/25 MG), USP [Suspect]
     Active Substance: HYDROCHLOROTHIAZIDE\TELMISARTAN

REACTIONS (1)
  - Mucous stools [Unknown]
